FAERS Safety Report 10153012 (Version 2)
Quarter: 2014Q2

REPORT INFORMATION
  Report Type: Spontaneous
  Country: FR (occurrence: FR)
  Receive Date: 20140505
  Receipt Date: 20140626
  Transmission Date: 20141212
  Serious: Yes (Hospitalization)
  Sender: FDA-Public Use
  Company Number: FR-PFIZER INC-2014120006

PATIENT
  Age: 75 Year
  Sex: Male

DRUGS (7)
  1. AMLOR [Suspect]
     Indication: HYPERTENSION
     Dosage: 5 MG, 1X/DAY
     Route: 048
     Dates: end: 20140323
  2. TAHOR [Suspect]
     Indication: DYSLIPIDAEMIA
     Dosage: 10 MG, 1X/DAY
     Route: 048
     Dates: end: 20140320
  3. DIAMICRON [Suspect]
     Indication: TYPE 2 DIABETES MELLITUS
     Dosage: 60 MG, 2X/DAY
     Route: 048
     Dates: start: 201401, end: 20140320
  4. STAGID [Suspect]
     Indication: TYPE 2 DIABETES MELLITUS
     Dosage: 700 MG, 3X/DAY
     Route: 048
     Dates: start: 201305, end: 20140320
  5. GALVUS [Suspect]
     Indication: TYPE 2 DIABETES MELLITUS
     Dosage: 50 MG, 2X/DAY
     Route: 048
     Dates: start: 201305, end: 20140313
  6. DEROXAT [Suspect]
     Indication: DEPRESSION
     Dosage: 20 MG, DAILY
     Route: 048
     Dates: end: 20140331
  7. BACLOFEN [Concomitant]
     Dosage: UNK

REACTIONS (3)
  - Hepatocellular injury [Not Recovered/Not Resolved]
  - Cholestasis [Not Recovered/Not Resolved]
  - Diabetes mellitus inadequate control [Unknown]
